FAERS Safety Report 25548556 (Version 1)
Quarter: 2025Q3

REPORT INFORMATION
  Report Type: Spontaneous
  Country: EU (occurrence: EU)
  Receive Date: 20250714
  Receipt Date: 20250714
  Transmission Date: 20251021
  Serious: Yes (Other)
  Sender: CHEPLAPHARM
  Company Number: None

PATIENT
  Age: 82 Year
  Sex: Male
  Weight: 82 kg

DRUGS (7)
  1. OLANZAPINE [Suspect]
     Active Substance: OLANZAPINE
     Indication: Depression
     Dosage: DAILY DOSE: 10 MILLIGRAM
     Dates: start: 20250620, end: 20250625
  2. TRAZODONE HYDROCHLORIDE [Suspect]
     Active Substance: TRAZODONE HYDROCHLORIDE
     Dosage: DAILY DOSE: 1 DOSAGE FORM
     Dates: start: 20250620
  3. FUROSEMIDE [Suspect]
     Active Substance: FUROSEMIDE
     Dates: start: 20250620
  4. DOMPERIDONE [Suspect]
     Active Substance: DOMPERIDONE
  5. DIGOXIN [Concomitant]
     Active Substance: DIGOXIN
  6. BISOPROLOL [Concomitant]
     Active Substance: BISOPROLOL
  7. IRON SUCROSE [Concomitant]
     Active Substance: IRON SUCROSE
     Indication: Atrial fibrillation

REACTIONS (6)
  - Electrocardiogram PR prolongation [Recovering/Resolving]
  - Syncope [Recovering/Resolving]
  - Ventricular tachycardia [Unknown]
  - Hypokalaemia [Unknown]
  - Catarrh [Unknown]
  - Off label use [Recovered/Resolved]

NARRATIVE: CASE EVENT DATE: 20250620
